FAERS Safety Report 24988797 (Version 2)
Quarter: 2025Q2

REPORT INFORMATION
  Report Type: Spontaneous
  Country: IT (occurrence: IT)
  Receive Date: 20250220
  Receipt Date: 20250403
  Transmission Date: 20250717
  Serious: Yes (Other)
  Sender: BEIGENE
  Company Number: None

PATIENT
  Weight: 72 kg

DRUGS (1)
  1. BRUKINSA [Suspect]
     Active Substance: ZANUBRUTINIB
     Indication: Mantle cell lymphoma recurrent

REACTIONS (4)
  - Thrombocytopenia [Not Recovered/Not Resolved]
  - Chronic kidney disease [Recovering/Resolving]
  - Anaemia [Recovered/Resolved]
  - Off label use [Unknown]
